FAERS Safety Report 5671626-2 (Version None)
Quarter: 2008Q1

REPORT INFORMATION
  Report Type: 
  Country: None (occurrence: None)
  Receive Date: 20080313
  Receipt Date: 20080303
  Transmission Date: 20080703
  Serious: Yes (Other)
  Sender: FDA-Public Use
  Company Number: GXKR2008GB02261

PATIENT
  Age: 42 Year
  Sex: Female
  Weight: 60 kg

DRUGS (5)
  1. SIMVASTATIN [Suspect]
     Indication: HYPERCHOLESTEROLAEMIA
     Dosage: ORAL
     Route: 048
     Dates: start: 20080221, end: 20080222
  2. AMOXICILLIN [Concomitant]
  3. DEPO-PROVERA SUSPENSION/INJ [Concomitant]
  4. TEMAZEPAM [Concomitant]
  5. ZOPICLONE (ZOPICLONE) [Concomitant]

REACTIONS (6)
  - ALCOHOL USE [None]
  - DIZZINESS [None]
  - HYPERHIDROSIS [None]
  - TACHYCARDIA [None]
  - THROAT TIGHTNESS [None]
  - VOMITING [None]
